FAERS Safety Report 6951152-0 (Version None)
Quarter: 2010Q3

REPORT INFORMATION
  Report Type: 
  Country: None (occurrence: None)
  Receive Date: 20100828
  Receipt Date: 20100312
  Transmission Date: 20110219
  Serious: No
  Sender: FDA-Public Use
  Company Number: US-ABBOTT-10P-163-0632434-00

PATIENT
  Sex: Female
  Weight: 67.192 kg

DRUGS (7)
  1. NIASPAN [Suspect]
     Indication: BLOOD CHOLESTEROL INCREASED
     Dates: start: 20070101, end: 20091201
  2. NIASPAN [Suspect]
     Dates: start: 20091201, end: 20100301
  3. COUMADIN [Concomitant]
     Indication: ATRIAL FIBRILLATION
  4. COUMADIN [Concomitant]
  5. TOPROL-XL [Concomitant]
     Indication: HYPERTENSION
  6. LANOXIN [Concomitant]
     Indication: PRODUCT USED FOR UNKNOWN INDICATION
  7. FUROSEMIDE [Concomitant]
     Indication: PRODUCT USED FOR UNKNOWN INDICATION

REACTIONS (5)
  - ATRIAL FIBRILLATION [None]
  - FLUSHING [None]
  - PAIN [None]
  - RASH [None]
  - SKIN BURNING SENSATION [None]
